FAERS Safety Report 10271908 (Version 1)
Quarter: 2014Q3

REPORT INFORMATION
  Report Type: Spontaneous
  Country: GB (occurrence: GB)
  Receive Date: 20140702
  Receipt Date: 20140702
  Transmission Date: 20150326
  Serious: Yes (Life-Threatening, Hospitalization, Disabling)
  Sender: FDA-Public Use
  Company Number: PHHY2014GB078893

PATIENT
  Sex: Male
  Weight: 115 kg

DRUGS (2)
  1. TACROLIMUS. [Suspect]
     Active Substance: TACROLIMUS
  2. CLARITHROMYCIN. [Interacting]
     Active Substance: CLARITHROMYCIN

REACTIONS (3)
  - Toxicity to various agents [Not Recovered/Not Resolved]
  - Renal failure acute [Not Recovered/Not Resolved]
  - Drug interaction [Not Recovered/Not Resolved]
